FAERS Safety Report 21511539 (Version 1)
Quarter: 2022Q4

REPORT INFORMATION
  Report Type: Report from Study
  Country: US (occurrence: US)
  Receive Date: 20221027
  Receipt Date: 20221027
  Transmission Date: 20230112
  Serious: No
  Sender: FDA-Public Use
  Company Number: US-ABBVIE-4170269

PATIENT
  Sex: Male

DRUGS (11)
  1. VENCLEXTA [Suspect]
     Active Substance: VENETOCLAX
     Indication: Chronic lymphocytic leukaemia
     Route: 048
  2. OMEPRAZOLE [Concomitant]
     Active Substance: OMEPRAZOLE
     Indication: Product used for unknown indication
     Dosage: ORAL TABLET DELAYED RELEASE 20 MG
     Route: 048
  3. 100 mg Allopurinol [Concomitant]
     Indication: Product used for unknown indication
     Route: 048
  4. 0.4 mg Flomax [Concomitant]
     Indication: Product used for unknown indication
     Route: 048
  5. METFORMIN HYDROCHLORIDE [Concomitant]
     Active Substance: METFORMIN HYDROCHLORIDE
     Indication: Product used for unknown indication
     Dosage: METFORMIN HCL ER ORAL TABLET EXTEND 500 MG
     Route: 048
  6. 10 mg Atorvastatin calcium [Concomitant]
     Indication: Product used for unknown indication
     Route: 048
  7. 400 mg Acyclovir [Concomitant]
     Indication: Product used for unknown indication
     Route: 048
  8. CIPROFLOXACIN HYDROCHLORIDE [Concomitant]
     Active Substance: CIPROFLOXACIN HYDROCHLORIDE
     Indication: Product used for unknown indication
     Route: 048
  9. 10 mg Citalopram hydrobromide [Concomitant]
     Indication: Product used for unknown indication
     Route: 048
  10. IBUPROFEN [Concomitant]
     Active Substance: IBUPROFEN
     Indication: Product used for unknown indication
     Route: 048
  11. ACETAMINOPHEN\HYDROCODONE [Concomitant]
     Active Substance: ACETAMINOPHEN\HYDROCODONE
     Indication: Product used for unknown indication
     Dosage: HYDROCODONE-ACETAMINOPHEN ORAL TABL 5-325 MG
     Route: 048

REACTIONS (1)
  - Abdominal pain [Unknown]
